FAERS Safety Report 4349832-9 (Version None)
Quarter: 2004Q2

REPORT INFORMATION
  Report Type: 
  Country: None (occurrence: None)
  Receive Date: 20040426
  Receipt Date: 20040415
  Transmission Date: 20050107
  Serious: Yes (Hospitalization)
  Sender: FDA-Public Use
  Company Number: 19651

PATIENT

DRUGS (2)
  1. NIASPAN [Suspect]
     Dosage: 500 MG  PO
     Route: 048
  2. ZOCOR [Suspect]
     Dosage: 80 MG PO
     Route: 048

REACTIONS (4)
  - CHROMATURIA [None]
  - DRUG INTERACTION [None]
  - HEPATITIS [None]
  - RHABDOMYOLYSIS [None]
